FAERS Safety Report 9913308 (Version 1)
Quarter: 2014Q1

REPORT INFORMATION
  Report Type: Spontaneous
  Country: US (occurrence: None)
  Receive Date: 20140214
  Receipt Date: 20140214
  Transmission Date: 20141002
  Serious: Yes (Hospitalization, Other)
  Sender: FDA-Public Use
  Company Number: ADR-2014-00235

PATIENT
  Age: 60 Year
  Sex: Male

DRUGS (2)
  1. BACLOFEN UNKNOWN (BACLOFEN INTRATHECAL) [Suspect]
  2. GABAPENTIN [Suspect]

REACTIONS (11)
  - Fatigue [None]
  - Tremor [None]
  - Speech disorder [None]
  - Memory impairment [None]
  - Mental status changes [None]
  - Blood creatine phosphokinase increased [None]
  - Screaming [None]
  - Tremor [None]
  - Muscle rigidity [None]
  - Hallucination, visual [None]
  - Acute psychosis [None]
